FAERS Safety Report 23205962 (Version 1)
Quarter: 2023Q4

REPORT INFORMATION
  Report Type: Spontaneous
  Country: NO (occurrence: NO)
  Receive Date: 20231120
  Receipt Date: 20231120
  Transmission Date: 20240110
  Serious: Yes (Other)
  Sender: FDA-Public Use
  Company Number: NO-ROCHE-3460616

PATIENT
  Sex: Female

DRUGS (1)
  1. XOLAIR [Suspect]
     Active Substance: OMALIZUMAB
     Indication: Product used for unknown indication
     Dosage: 150 MG, QW2
     Route: 064

REACTIONS (5)
  - Haemorrhage foetal [Unknown]
  - Foetal hypokinesia [Unknown]
  - Foetal growth restriction [Unknown]
  - Foetal growth abnormality [Unknown]
  - Foetal exposure during pregnancy [Unknown]
